FAERS Safety Report 8776495 (Version 1)
Quarter: 2012Q4

REPORT INFORMATION
  Report Type: Report from Study
  Country: CA (occurrence: CA)
  Receive Date: 20120910
  Receipt Date: 20120910
  Transmission Date: 20130627
  Serious: Yes (Hospitalization, Other)
  Sender: FDA-Public Use
  Company Number: CA-JNJFOC-20120900994

PATIENT
  Age: 80 Year
  Sex: Male
  Weight: 69.7 kg

DRUGS (3)
  1. REMICADE [Suspect]
     Indication: CROHN^S DISEASE
     Route: 042
     Dates: start: 20120723
  2. REMICADE [Suspect]
     Indication: CROHN^S DISEASE
     Route: 042
  3. METOPROLOL [Concomitant]
     Route: 065

REACTIONS (1)
  - Surgery [Unknown]
